FAERS Safety Report 7499834-9 (Version None)
Quarter: 2011Q2

REPORT INFORMATION
  Report Type: 
  Country: None (occurrence: None)
  Receive Date: 20110524
  Receipt Date: 20110518
  Transmission Date: 20111010
  Serious: Yes (Other)
  Sender: FDA-Public Use
  Company Number: DK-ROCHE-778377

PATIENT

DRUGS (3)
  1. XELODA [Suspect]
     Route: 065
  2. AVASTIN [Suspect]
     Route: 065
  3. TAXOL [Concomitant]

REACTIONS (1)
  - DISEASE PROGRESSION [None]
